FAERS Safety Report 5807511-2 (Version None)
Quarter: 2008Q3

REPORT INFORMATION
  Report Type: 
  Country: None (occurrence: None)
  Receive Date: 20080711
  Receipt Date: 20080630
  Transmission Date: 20090109
  Serious: Yes (Hospitalization, Other)
  Sender: FDA-Public Use
  Company Number: US-WYE-H04763308

PATIENT
  Age: 39 Year
  Sex: Female

DRUGS (17)
  1. EFFEXOR [Suspect]
     Indication: AFFECTIVE DISORDER
  2. EFFEXOR [Suspect]
     Indication: ANXIETY
  3. CARVEDILOL [Concomitant]
  4. SPIRONOLACTONE [Concomitant]
  5. LISINOPRIL [Concomitant]
  6. DULOXETINE [Suspect]
     Indication: AFFECTIVE DISORDER
  7. RIZATRIPTAN BENZOATE [Concomitant]
     Dosage: 5 MG AS NEEDED
  8. RIZATRIPTAN BENZOATE [Concomitant]
     Dosage: 5 MG AS NEEDED
  9. TRIAMCINOLONE [Concomitant]
     Dosage: UNKNOWN
     Route: 045
  10. TRIAMCINOLONE [Concomitant]
     Dosage: UNKNOWN
     Route: 045
  11. FEXOFENADINE [Concomitant]
  12. FEXOFENADINE [Concomitant]
  13. DICYCLOMINE HCL [Concomitant]
     Dosage: 10 MG BEFORE MEALS
  14. DICYCLOMINE HCL [Concomitant]
     Dosage: 10 MG BEFORE MEALS
  15. FUROSEMIDE [Concomitant]
  16. ALPRAZOLAM [Concomitant]
     Dosage: 0.25 MG AT BEDTIME AS NEEDED
  17. ALPRAZOLAM [Concomitant]
     Dosage: 0.25 MG AT BEDTIME AS NEEDED

REACTIONS (3)
  - CARDIAC FAILURE [None]
  - CONGESTIVE CARDIOMYOPATHY [None]
  - LEFT VENTRICULAR DYSFUNCTION [None]
